FAERS Safety Report 9301407 (Version 1)
Quarter: 2012Q4

REPORT INFORMATION
  Report Type: Spontaneous
  Country: DK (occurrence: None)
  Receive Date: 20121231
  Receipt Date: 20121231
  Transmission Date: 20130627
  Serious: Yes (Death)
  Sender: FDA-Public Use
  Company Number: 2012MA014328

PATIENT
  Age: 73 Year
  Sex: Male

DRUGS (8)
  1. METFORMIN HYDROCHLORIDE EXTENDED-RELEASE TABLETS, 500 MG (PUREPAC) (METFORMIN HYDROCHLORIDE) [Suspect]
     Indication: HYPERGLYCAEMIA
     Dates: end: 20111009
  2. FUROSEMIDE (FUROSEMIDE) [Suspect]
     Indication: FLUID RETENTION
  3. ACETYLSALICYLIC ACID [Concomitant]
  4. SIMVASTATIN [Concomitant]
  5. LANSOPRAZOLE [Concomitant]
  6. BISOPROLOL [Concomitant]
  7. TRAMADOL [Concomitant]
  8. DIGOXIN [Concomitant]

REACTIONS (4)
  - Lactic acidosis [None]
  - Glomerular filtration rate decreased [None]
  - Blood glucose decreased [None]
  - Hypophagia [None]
